FAERS Safety Report 9975611 (Version 1)
Quarter: 2014Q1

REPORT INFORMATION
  Report Type: Report from Study
  Country: US (occurrence: US)
  Receive Date: 20140306
  Receipt Date: 20140306
  Transmission Date: 20141002
  Serious: No
  Sender: FDA-Public Use
  Company Number: US-ABBVIE-13P-163-1155749-00

PATIENT
  Age: 29 Year
  Sex: Male

DRUGS (4)
  1. HUMIRA [Suspect]
     Indication: COLITIS ULCERATIVE
     Dates: start: 20130829, end: 20130829
  2. HUMIRA [Suspect]
     Dates: start: 20130830, end: 20130830
  3. HUMIRA [Suspect]
     Dates: start: 20130913, end: 20130913
  4. HUMIRA [Suspect]
     Dates: start: 20130927

REACTIONS (1)
  - Inappropriate schedule of drug administration [Recovered/Resolved]
